FAERS Safety Report 6841430-8 (Version None)
Quarter: 2010Q3

REPORT INFORMATION
  Report Type: 
  Country: None (occurrence: None)
  Receive Date: 20100714
  Receipt Date: 20070703
  Transmission Date: 20110219
  Serious: No
  Sender: FDA-Public Use
  Company Number: US-PFIZER INC-2007056239

PATIENT
  Sex: Female
  Weight: 50 kg

DRUGS (4)
  1. CHANTIX [Suspect]
     Indication: SMOKING CESSATION THERAPY
     Dates: start: 20070601
  2. VERAPAMIL [Concomitant]
     Indication: BLOOD PRESSURE ABNORMAL
  3. ACETYLSALICYLIC ACID [Concomitant]
  4. HYZAAR [Concomitant]
     Indication: BLOOD PRESSURE ABNORMAL

REACTIONS (6)
  - ABDOMINAL PAIN UPPER [None]
  - DYSPEPSIA [None]
  - HEADACHE [None]
  - MALAISE [None]
  - NAUSEA [None]
  - VOMITING [None]
